FAERS Safety Report 8977909 (Version 1)
Quarter: 2012Q4

REPORT INFORMATION
  Report Type: 
  Country: US (occurrence: US)
  Receive Date: 20121219
  Receipt Date: 20121219
  Transmission Date: 20130627
  Serious: Yes (Hospitalization)
  Sender: FDA-Public Use
  Company Number: US-TEVA-376330USA

PATIENT
  Age: 73 Year
  Sex: Male
  Weight: 86.26 kg

DRUGS (4)
  1. AZILECT [Suspect]
     Indication: PARKINSON^S DISEASE
     Dosage: .5 Milligram Daily;
     Route: 048
     Dates: start: 20121201, end: 20121211
  2. CLONAZEPAM [Concomitant]
     Indication: RESTLESS LEGS SYNDROME
     Dosage: 1 Milligram Daily;
     Route: 048
  3. SINEMET [Concomitant]
     Indication: PARKINSON^S DISEASE
     Dosage: dose unit: 25/100mg, daily dose: 350/1400mg
     Route: 048
  4. SYNERGA [Concomitant]
     Indication: PROBIOTIC THERAPY
     Route: 048

REACTIONS (3)
  - Pancreatitis acute [Not Recovered/Not Resolved]
  - Abdominal pain lower [Not Recovered/Not Resolved]
  - Constipation [Recovered/Resolved]
